FAERS Safety Report 8545286-7 (Version None)
Quarter: 2012Q3

REPORT INFORMATION
  Report Type: 
  Country: None (occurrence: None)
  Receive Date: 20120727
  Receipt Date: 20120702
  Transmission Date: 20120928
  Serious: No
  Sender: FDA-Public Use
  Company Number: US-009507513-1206USA04587

PATIENT

DRUGS (3)
  1. CECLOR [Concomitant]
  2. AZASITE [Suspect]
     Dosage: 1, DROP, BID
     Route: 047
     Dates: start: 20120614, end: 20120616
  3. AZASITE [Suspect]
     Dosage: 1 DROP QD
     Route: 047

REACTIONS (2)
  - OFF LABEL USE [None]
  - EYE PAIN [None]
